FAERS Safety Report 9261307 (Version 1)
Quarter: 2013Q2

REPORT INFORMATION
  Report Type: Spontaneous
  Country: JP (occurrence: JP)
  Receive Date: 20130429
  Receipt Date: 20130429
  Transmission Date: 20140414
  Serious: Yes (Hospitalization, Other)
  Sender: FDA-Public Use
  Company Number: JP-JNJFOC-20130410495

PATIENT
  Age: 59 Year
  Sex: Male

DRUGS (1)
  1. INFLIXIMAB, RECOMBINANT [Suspect]
     Indication: BEHCET^S SYNDROME
     Route: 042
     Dates: start: 201110

REACTIONS (5)
  - Pneumonia [Unknown]
  - Pseudomonal sepsis [Unknown]
  - Cytomegalovirus test positive [Unknown]
  - Oesophageal candidiasis [Unknown]
  - Drug ineffective for unapproved indication [Unknown]
